FAERS Safety Report 5975288-6 (Version None)
Quarter: 2008Q4

REPORT INFORMATION
  Report Type: 
  Country: None (occurrence: None)
  Receive Date: 20081202
  Receipt Date: 20081125
  Transmission Date: 20090506
  Serious: Yes (Other)
  Sender: FDA-Public Use
  Company Number: US-BAYER-200835483NA

PATIENT
  Age: 43 Year
  Sex: Female

DRUGS (1)
  1. MIRENA [Suspect]
     Indication: MENORRHAGIA
     Route: 015
     Dates: start: 20080401, end: 20080901

REACTIONS (15)
  - ANXIETY [None]
  - BONE PAIN [None]
  - DYSARTHRIA [None]
  - ELECTROCARDIOGRAM ABNORMAL [None]
  - FACIAL PALSY [None]
  - GAIT DISTURBANCE [None]
  - HEADACHE [None]
  - HEMIPLEGIA [None]
  - HYPOAESTHESIA [None]
  - HYPOAESTHESIA FACIAL [None]
  - HYPOAESTHESIA ORAL [None]
  - MIGRAINE [None]
  - MITRAL VALVE DISEASE [None]
  - PAIN IN EXTREMITY [None]
  - PARAESTHESIA [None]
